FAERS Safety Report 10778591 (Version 1)
Quarter: 2015Q1

REPORT INFORMATION
  Report Type: Spontaneous
  Country: FR (occurrence: FR)
  Receive Date: 20150210
  Receipt Date: 20150210
  Transmission Date: 20150721
  Serious: Yes (Hospitalization)
  Sender: FDA-Public Use
  Company Number: FR-ROCHE-1533576

PATIENT
  Age: 71 Year
  Sex: Female

DRUGS (1)
  1. ZELBORAF [Suspect]
     Active Substance: VEMURAFENIB
     Indication: ERDHEIM-CHESTER DISEASE
     Dosage: 2 DF IN THE MORNING AND 1 DF IN THE EVENING
     Route: 048
     Dates: start: 20141022, end: 20150109

REACTIONS (2)
  - Cell death [Recovering/Resolving]
  - Cholestasis [Recovering/Resolving]

NARRATIVE: CASE EVENT DATE: 20141231
